FAERS Safety Report 11072119 (Version 1)
Quarter: 2015Q2

REPORT INFORMATION
  Report Type: Report from Study
  Country: BR (occurrence: BR)
  Receive Date: 20150428
  Receipt Date: 20150428
  Transmission Date: 20150821
  Serious: Yes (Other)
  Sender: FDA-Public Use
  Company Number: PHHY2015BR046636

PATIENT
  Age: 89 Year
  Sex: Male
  Weight: 56 kg

DRUGS (2)
  1. ZELMAC [Suspect]
     Active Substance: TEGASEROD
     Indication: PRODUCT USED FOR UNKNOWN INDICATION
     Dosage: 30 OT, UNK
     Route: 065
  2. FORASEQ [Suspect]
     Active Substance: BUDESONIDE\FORMOTEROL FUMARATE
     Indication: PRODUCT USED FOR UNKNOWN INDICATION
     Dosage: 12/200 MCG
     Route: 065

REACTIONS (2)
  - Memory impairment [Unknown]
  - Dementia [Unknown]
